FAERS Safety Report 15059114 (Version 1)
Quarter: 2018Q2

REPORT INFORMATION
  Report Type: Spontaneous
  Country: DE (occurrence: DE)
  Receive Date: 20180625
  Receipt Date: 20180625
  Transmission Date: 20180711
  Serious: Yes (Hospitalization)
  Sender: FDA-Public Use
  Company Number: PHHY2018DE021023

PATIENT
  Age: 25 Year
  Sex: Female

DRUGS (2)
  1. QUETIAPINE. [Suspect]
     Active Substance: QUETIAPINE
     Indication: DEPRESSION
     Dosage: 150 MG/KG, UNK
     Route: 065
  2. AMITRIPTYLINE [Suspect]
     Active Substance: AMITRIPTYLINE
     Indication: DEPRESSION
     Dosage: 85 MG/KG, UNK
     Route: 065

REACTIONS (14)
  - Anticholinergic syndrome [Recovered/Resolved]
  - Bradypnoea [Recovered/Resolved]
  - Pyrexia [Recovered/Resolved]
  - Poisoning [Recovered/Resolved]
  - Loss of consciousness [Recovered/Resolved]
  - Cardiogenic shock [Recovered/Resolved]
  - Myoclonus [Recovered/Resolved]
  - Shock [Recovered/Resolved]
  - Suicide attempt [Unknown]
  - Sinus tachycardia [Recovered/Resolved]
  - Hyperthermia [Recovered/Resolved]
  - Coma [Recovered/Resolved]
  - Ventricular tachycardia [Recovered/Resolved]
  - Cardiovascular insufficiency [Recovered/Resolved]
